FAERS Safety Report 4537189-X (Version None)
Quarter: 2004Q4

REPORT INFORMATION
  Report Type: 
  Country: None (occurrence: None)
  Receive Date: 20041223
  Receipt Date: 20041012
  Transmission Date: 20050328
  Serious: Yes (Hospitalization, Other)
  Sender: FDA-Public Use
  Company Number: DEWYE105712OCT04

PATIENT
  Sex: Female

DRUGS (1)
  1. ENBREL [Suspect]
     Indication: POLYARTHRITIS
     Dosage: UNKNOWN
     Route: 058
     Dates: start: 20030301, end: 20040901

REACTIONS (1)
  - GUILLAIN-BARRE SYNDROME [None]
